FAERS Safety Report 9736514 (Version 2)
Quarter: 2013Q4

REPORT INFORMATION
  Report Type: Report from Study
  Country: US (occurrence: US)
  Receive Date: 20131206
  Receipt Date: 20131206
  Transmission Date: 20140711
  Serious: Yes (Hospitalization, Other)
  Sender: FDA-Public Use
  Company Number: US-ABBVIE-13P-163-1088602-00

PATIENT
  Sex: Male

DRUGS (4)
  1. HUMIRA [Suspect]
     Indication: PSORIASIS
     Dates: end: 201302
  2. HUMIRA [Suspect]
     Dates: end: 201304
  3. HUMIRA [Suspect]
     Dates: start: 20131127
  4. PREVACID [Concomitant]
     Indication: GASTROOESOPHAGEAL REFLUX DISEASE

REACTIONS (8)
  - Pulmonary oedema [Recovering/Resolving]
  - Dyspnoea [Recovering/Resolving]
  - Dyspnoea [Recovering/Resolving]
  - Dyspnoea [Recovering/Resolving]
  - Abdominal pain upper [Recovering/Resolving]
  - Abasia [Recovering/Resolving]
  - Atrial fibrillation [Recovering/Resolving]
  - Psoriasis [Unknown]
